FAERS Safety Report 9898917 (Version 5)
Quarter: 2014Q2

REPORT INFORMATION
  Report Type: Report from Study
  Country: US (occurrence: US)
  Receive Date: 20140214
  Receipt Date: 20140508
  Transmission Date: 20141212
  Serious: Yes (Hospitalization, Other)
  Sender: FDA-Public Use
  Company Number: US-ACTELION-A-US2014-94756

PATIENT
  Age: 77 Year
  Sex: Female

DRUGS (3)
  1. TRACLEER [Suspect]
     Indication: PULMONARY ARTERIAL HYPERTENSION
     Dosage: UNK
     Route: 048
  2. RIOCIGUAT [Concomitant]
  3. COUMADIN [Concomitant]

REACTIONS (6)
  - Pulmonary mass [Unknown]
  - Lung infection [Unknown]
  - Dyspnoea [Unknown]
  - Cellulitis [Unknown]
  - Pulmonary arterial pressure increased [Unknown]
  - Mobility decreased [Unknown]
